FAERS Safety Report 9519057 (Version 1)
Quarter: 2013Q3

REPORT INFORMATION
  Report Type: Report from Study
  Country: US (occurrence: US)
  Receive Date: 20130912
  Receipt Date: 20130912
  Transmission Date: 20140515
  Serious: Yes (Other)
  Sender: FDA-Public Use
  Company Number: US-US-EMD SERONO, INC.-7235858

PATIENT
  Age: 10 Year
  Sex: Female
  Weight: 35 kg

DRUGS (3)
  1. SAIZEN [(SOMATROPIN (RDNA ORIGIN) FOR INJECTION)] [Suspect]
     Indication: GROWTH RETARDATION
     Route: 058
     Dates: start: 20101230
  2. SAIZEN [(SOMATROPIN (RDNA ORIGIN) FOR INJECTION)] [Suspect]
     Indication: SMALL FOR DATES BABY
  3. LEVOTHYROXINE [Concomitant]
     Indication: HYPOTHYROIDISM

REACTIONS (2)
  - Autoimmune thyroiditis [Unknown]
  - Depression [Unknown]
